FAERS Safety Report 7734129-7 (Version None)
Quarter: 2011Q3

REPORT INFORMATION
  Report Type: 
  Country: None (occurrence: None)
  Receive Date: 20110907
  Receipt Date: 20110901
  Transmission Date: 20111222
  Serious: Yes (Other)
  Sender: FDA-Public Use
  Company Number: BR-ROCHE-800319

PATIENT
  Sex: Male
  Weight: 62 kg

DRUGS (2)
  1. PHENOBARBITAL TAB [Concomitant]
  2. CLONAZEPAM [Suspect]
     Indication: EPILEPSY
     Dosage: DOSE: 2.5 MG/ML
     Route: 065
     Dates: start: 20060101

REACTIONS (6)
  - DRY MOUTH [None]
  - NERVOUS SYSTEM DISORDER [None]
  - SLEEP DISORDER [None]
  - DIARRHOEA [None]
  - DECREASED APPETITE [None]
  - GASTROINTESTINAL INFECTION [None]
